FAERS Safety Report 21737751 (Version 5)
Quarter: 2024Q3

REPORT INFORMATION
  Report Type: Spontaneous
  Country: CA (occurrence: CA)
  Receive Date: 20221216
  Receipt Date: 20240830
  Transmission Date: 20241017
  Serious: Yes (Other)
  Sender: AUROBINDO
  Company Number: CA-AUROBINDO-AUR-APL-2022-052277

PATIENT
  Age: 77 Year
  Sex: Male

DRUGS (45)
  1. GABAPENTIN [Suspect]
     Active Substance: GABAPENTIN
     Indication: Parkinsonian rest tremor
     Dosage: UNK
     Route: 065
  2. GABAPENTIN [Suspect]
     Active Substance: GABAPENTIN
     Indication: Parkinson^s disease
  3. GABAPENTIN [Suspect]
     Active Substance: GABAPENTIN
     Indication: Head titubation
  4. GABAPENTIN [Suspect]
     Active Substance: GABAPENTIN
     Indication: Resting tremor
  5. CARBIDOPA\LEVODOPA [Suspect]
     Active Substance: CARBIDOPA\LEVODOPA
     Indication: Dysphonia
     Dosage: UNK
     Route: 065
  6. CARBIDOPA\LEVODOPA [Suspect]
     Active Substance: CARBIDOPA\LEVODOPA
     Indication: Tremor
  7. PRAMIPEXOLE [Suspect]
     Active Substance: PRAMIPEXOLE\PRAMIPEXOLE DIHYDROCHLORIDE
     Indication: Parkinson^s disease
     Dosage: 1 MILLIGRAM, 3 TIMES A DAY
     Route: 065
  8. PRAMIPEXOLE [Suspect]
     Active Substance: PRAMIPEXOLE\PRAMIPEXOLE DIHYDROCHLORIDE
     Indication: Parkinsonian rest tremor
  9. PRAMIPEXOLE [Suspect]
     Active Substance: PRAMIPEXOLE\PRAMIPEXOLE DIHYDROCHLORIDE
     Indication: Head titubation
  10. PRAMIPEXOLE [Suspect]
     Active Substance: PRAMIPEXOLE\PRAMIPEXOLE DIHYDROCHLORIDE
     Indication: Resting tremor
  11. AMANTADINE [Suspect]
     Active Substance: AMANTADINE
     Indication: Parkinson^s disease
     Dosage: 100 MILLIGRAM, ONCE A DAY
     Route: 065
  12. AMANTADINE [Suspect]
     Active Substance: AMANTADINE
     Indication: Parkinsonian rest tremor
     Dosage: 200 MILLIGRAM, ONCE A DAY
     Route: 065
  13. AMANTADINE [Suspect]
     Active Substance: AMANTADINE
     Indication: Head titubation
     Dosage: 100 MILLIGRAM, TWO TIMES A DAY
     Route: 065
  14. AMANTADINE [Suspect]
     Active Substance: AMANTADINE
     Indication: Resting tremor
  15. BENSERAZIDE HYDROCHLORIDE\LEVODOPA [Suspect]
     Active Substance: BENSERAZIDE HYDROCHLORIDE\LEVODOPA
     Indication: Parkinson^s disease
     Dosage: UNK, 3 TIMES A DAY
     Route: 065
  16. BENSERAZIDE HYDROCHLORIDE\LEVODOPA [Suspect]
     Active Substance: BENSERAZIDE HYDROCHLORIDE\LEVODOPA
     Indication: Resting tremor
     Dosage: UNK, 3 TIMES A DAY
     Route: 065
  17. CARBIDOPA [Suspect]
     Active Substance: CARBIDOPA
     Indication: Tremor
     Dosage: UNK
     Route: 065
  18. CARBIDOPA [Suspect]
     Active Substance: CARBIDOPA
     Indication: Dysphonia
  19. CLONAZEPAM [Suspect]
     Active Substance: CLONAZEPAM
     Indication: Parkinson^s disease
     Dosage: UNK
     Route: 048
  20. CLONAZEPAM [Suspect]
     Active Substance: CLONAZEPAM
     Indication: Parkinsonian rest tremor
  21. CLONAZEPAM [Suspect]
     Active Substance: CLONAZEPAM
     Indication: Head titubation
  22. PROFENAMINE [Suspect]
     Active Substance: PROFENAMINE
     Indication: Parkinson^s disease
     Dosage: UNK
     Route: 065
  23. PROFENAMINE [Suspect]
     Active Substance: PROFENAMINE
     Indication: Parkinsonian rest tremor
  24. PROFENAMINE [Suspect]
     Active Substance: PROFENAMINE
     Indication: Head titubation
  25. PRIMIDONE [Suspect]
     Active Substance: PRIMIDONE
     Indication: Parkinson^s disease
     Dosage: UNK
     Route: 065
  26. PRIMIDONE [Suspect]
     Active Substance: PRIMIDONE
     Indication: Parkinsonian rest tremor
  27. PRIMIDONE [Suspect]
     Active Substance: PRIMIDONE
     Indication: Head titubation
  28. PRIMIDONE [Suspect]
     Active Substance: PRIMIDONE
     Indication: Resting tremor
  29. PROPRANOLOL [Suspect]
     Active Substance: PROPRANOLOL HYDROCHLORIDE
     Indication: Parkinson^s disease
     Dosage: UNK
     Route: 065
  30. PROPRANOLOL [Suspect]
     Active Substance: PROPRANOLOL HYDROCHLORIDE
     Indication: Parkinsonian rest tremor
  31. PROPRANOLOL [Suspect]
     Active Substance: PROPRANOLOL HYDROCHLORIDE
     Indication: Head titubation
  32. PROPRANOLOL [Suspect]
     Active Substance: PROPRANOLOL HYDROCHLORIDE
     Indication: Resting tremor
  33. ROPINIROLE [Suspect]
     Active Substance: ROPINIROLE
     Indication: Parkinson^s disease
     Dosage: UNK
     Route: 065
  34. ROPINIROLE [Suspect]
     Active Substance: ROPINIROLE
     Indication: Parkinsonian rest tremor
  35. ROPINIROLE [Suspect]
     Active Substance: ROPINIROLE
     Indication: Head titubation
  36. ROPINIROLE [Suspect]
     Active Substance: ROPINIROLE
     Indication: Resting tremor
  37. SELEGILINE [Suspect]
     Active Substance: SELEGILINE
     Indication: Tremor
     Dosage: UNK
     Route: 065
  38. SELEGILINE [Suspect]
     Active Substance: SELEGILINE
     Indication: Dysphonia
  39. TRIHEXYPHENIDYL [Suspect]
     Active Substance: TRIHEXYPHENIDYL
     Indication: Parkinson^s disease
     Dosage: 2 MILLIGRAM, 3 TIMES A DAY
     Route: 065
  40. TRIHEXYPHENIDYL [Suspect]
     Active Substance: TRIHEXYPHENIDYL
     Indication: Parkinsonian rest tremor
  41. TRIHEXYPHENIDYL [Suspect]
     Active Substance: TRIHEXYPHENIDYL
     Indication: Head titubation
  42. PROFENAMINE HYDROCHLORIDE [Suspect]
     Active Substance: PROFENAMINE HYDROCHLORIDE
     Indication: Resting tremor
     Dosage: UNK
     Route: 065
  43. PROFENAMINE HYDROCHLORIDE [Suspect]
     Active Substance: PROFENAMINE HYDROCHLORIDE
     Indication: Parkinsonian rest tremor
  44. PROFENAMINE HYDROCHLORIDE [Suspect]
     Active Substance: PROFENAMINE HYDROCHLORIDE
     Indication: Parkinson^s disease
  45. PROFENAMINE HYDROCHLORIDE [Suspect]
     Active Substance: PROFENAMINE HYDROCHLORIDE
     Indication: Head titubation

REACTIONS (7)
  - Hallucination [Unknown]
  - Oedema peripheral [Unknown]
  - Somnolence [Unknown]
  - Dizziness [Unknown]
  - Parkinsonian rest tremor [Unknown]
  - Off label use [Unknown]
  - Drug ineffective [Unknown]
